FAERS Safety Report 17593945 (Version 1)
Quarter: 2020Q1

REPORT INFORMATION
  Report Type: Spontaneous
  Country: US (occurrence: US)
  Receive Date: 20200328
  Receipt Date: 20200328
  Transmission Date: 20200409
  Serious: No
  Sender: FDA-Public Use
  Company Number: US-DRREDDYS-USA/USA/20/0120825

PATIENT
  Sex: Female

DRUGS (2)
  1. GEMCITABINE. [Suspect]
     Active Substance: GEMCITABINE
     Indication: NEOPLASM MALIGNANT
  2. GEMCITABINE. [Suspect]
     Active Substance: GEMCITABINE
     Dosage: HAD A TREATMENT ON 12-MAR-2020
     Dates: start: 20200312

REACTIONS (1)
  - Gait inability [Not Recovered/Not Resolved]

NARRATIVE: CASE EVENT DATE: 20200213
